FAERS Safety Report 7781660-4 (Version None)
Quarter: 2011Q3

REPORT INFORMATION
  Report Type: 
  Country: None (occurrence: None)
  Receive Date: 20110927
  Receipt Date: 20110519
  Transmission Date: 20111222
  Serious: No
  Sender: FDA-Public Use
  Company Number: US-BAYER-2011-044415

PATIENT
  Age: 47 Year
  Sex: Male
  Weight: 81.633 kg

DRUGS (1)
  1. ALEVE (CAPLET) [Suspect]
     Indication: TOOTHACHE
     Dosage: UNK
     Route: 048

REACTIONS (1)
  - TOOTHACHE [None]
